FAERS Safety Report 24948682 (Version 1)
Quarter: 2025Q1

REPORT INFORMATION
  Report Type: Spontaneous
  Country: IN (occurrence: IN)
  Receive Date: 20250210
  Receipt Date: 20250210
  Transmission Date: 20250409
  Serious: Yes (Other)
  Sender: ACCORD
  Company Number: IN-MLMSERVICE-20250123-PI370575-00232-1

PATIENT
  Age: 36 Year
  Sex: Male

DRUGS (1)
  1. MYCOPHENOLATE MOFETIL [Suspect]
     Active Substance: MYCOPHENOLATE MOFETIL
     Indication: Lupus nephritis

REACTIONS (5)
  - Disseminated cryptococcosis [Recovering/Resolving]
  - Kidney infection [Recovering/Resolving]
  - Gastrointestinal fungal infection [Recovering/Resolving]
  - Pneumonia [Unknown]
  - Pleural effusion [Unknown]
